FAERS Safety Report 4726944-9 (Version None)
Quarter: 2005Q3

REPORT INFORMATION
  Report Type: 
  Country: None (occurrence: None)
  Receive Date: 20050725
  Receipt Date: 20050725
  Transmission Date: 20060218
  Serious: Yes (Life-Threatening, Hospitalization)
  Sender: FDA-Public Use
  Company Number: None

PATIENT
  Sex: Male

DRUGS (2)
  1. ARGATROBAN [Suspect]
     Indication: DEEP VEIN THROMBOSIS
     Dates: start: 20050427, end: 20050429
  2. WARFARIN [Suspect]
     Indication: DEEP VEIN THROMBOSIS
     Dates: start: 20050427, end: 20050430

REACTIONS (1)
  - HAEMORRHAGE [None]
